FAERS Safety Report 8827005 (Version 3)
Quarter: 2013Q2

REPORT INFORMATION
  Report Type: Spontaneous
  Country: US (occurrence: US)
  Receive Date: 20121008
  Receipt Date: 20130624
  Transmission Date: 20140414
  Serious: Yes (Death, Hospitalization)
  Sender: FDA-Public Use
  Company Number: US-BIOGENIDEC-2012BI042184

PATIENT
  Age: 76 Year
  Sex: Male

DRUGS (2)
  1. AVONEX [Suspect]
     Indication: MULTIPLE SCLEROSIS
     Route: 030
     Dates: start: 20010927, end: 20030819
  2. AVONEX [Suspect]
     Indication: MULTIPLE SCLEROSIS
     Route: 030
     Dates: start: 20030826, end: 20120922

REACTIONS (6)
  - Respiratory failure [Fatal]
  - Dysphagia [Unknown]
  - Memory impairment [Unknown]
  - Multiple sclerosis [Unknown]
  - Aspiration [Unknown]
  - Pneumonia [Unknown]
